FAERS Safety Report 11982524 (Version 1)
Quarter: 2016Q1

REPORT INFORMATION
  Report Type: Spontaneous
  Country: US (occurrence: US)
  Receive Date: 20160201
  Receipt Date: 20160201
  Transmission Date: 20160526
  Serious: Yes (Death, Other)
  Sender: FDA-Public Use
  Company Number: US-BAYER-2016-013715

PATIENT
  Age: 76 Year
  Sex: Male
  Weight: 74.83 kg

DRUGS (4)
  1. SUTENT [Suspect]
     Active Substance: SUNITINIB MALATE
     Indication: BONE CANCER
     Dosage: 50 MG, DAILY, ONE WEEK ON AND ONE WEEK OFF
  2. SUTENT [Suspect]
     Active Substance: SUNITINIB MALATE
     Indication: RENAL CANCER
  3. MORPHINE [Suspect]
     Active Substance: MORPHINE
     Indication: PAIN
     Dosage: 30 MG, (HAD TOTAL OF 3 DOSES)
     Route: 048
     Dates: start: 201504
  4. ALEVE [Suspect]
     Active Substance: NAPROXEN SODIUM
     Dosage: UNK
     Dates: start: 2015, end: 20160111

REACTIONS (13)
  - Multiple organ dysfunction syndrome [Fatal]
  - Anaemia [None]
  - Vomiting [None]
  - Constipation [None]
  - Renal failure [Fatal]
  - Pulmonary haemorrhage [None]
  - Lacunar stroke [None]
  - Nausea [None]
  - Fall [None]
  - Mouth haemorrhage [None]
  - Dehydration [None]
  - Blood pressure decreased [None]
  - Renal injury [None]

NARRATIVE: CASE EVENT DATE: 2015
